FAERS Safety Report 10913642 (Version 2)
Quarter: 2015Q1

REPORT INFORMATION
  Report Type: Spontaneous
  Country: ES (occurrence: ES)
  Receive Date: 20150313
  Receipt Date: 20150327
  Transmission Date: 20150721
  Serious: Yes (Hospitalization)
  Sender: FDA-Public Use
  Company Number: ES-PFIZER INC-2015089933

PATIENT
  Age: 60 Year
  Sex: Male

DRUGS (9)
  1. PLENUR [Interacting]
     Active Substance: LITHIUM CARBONATE
     Indication: DEPRESSION
     Dosage: 400 MG, 2X/DAY
     Route: 048
     Dates: start: 20140221, end: 20140410
  2. DOBUPAL [Interacting]
     Active Substance: VENLAFAXINE HYDROCHLORIDE
     Indication: DEPRESSION
     Dosage: 37.5 MG, 2X/DAY
     Route: 048
     Dates: start: 2009, end: 20140410
  3. ZIPRASIDONE HCL [Interacting]
     Active Substance: ZIPRASIDONE HYDROCHLORIDE
     Indication: DEPRESSION
     Dosage: UNK, 2X/DAY
     Route: 048
     Dates: start: 20140221, end: 20140410
  4. ENALAPRILHYDROCHLOROTHIAZIDE [Interacting]
     Active Substance: ENALAPRIL MALEATE\HYDROCHLOROTHIAZIDE
     Indication: HYPERTENSION
     Dosage: 1 DF (20/12.5 MG), 2X/DAY
     Route: 048
     Dates: start: 20140221, end: 20140410
  5. MIRTAZAPINE. [Interacting]
     Active Substance: MIRTAZAPINE
     Indication: DEPRESSION
     Dosage: 30 MG, 1X/DAY
     Route: 048
     Dates: start: 2009, end: 20140410
  6. ATENOLOL. [Interacting]
     Active Substance: ATENOLOL
     Indication: HYPERTENSION
     Dosage: 25 MG, 2X/DAY
     Route: 048
     Dates: start: 20140221, end: 20140410
  7. LYRICA [Suspect]
     Active Substance: PREGABALIN
     Indication: DEPRESSION
     Dosage: 150 MG 2X/DAY AND 75 MG 1X/DAY
     Route: 048
     Dates: start: 20140221, end: 20140410
  8. AGOMELATINE [Interacting]
     Active Substance: AGOMELATINE
     Indication: DEPRESSION
     Dosage: 25 MG, 1X/DAY
     Route: 048
     Dates: start: 20140221, end: 20140410
  9. FINASTERIDE. [Concomitant]
     Active Substance: FINASTERIDE
     Indication: BENIGN PROSTATIC HYPERPLASIA
     Dosage: 5 MG, 1X/DAY
     Route: 048
     Dates: start: 2009, end: 20140410

REACTIONS (5)
  - Colonic pseudo-obstruction [Recovered/Resolved]
  - Myoclonus [Recovered/Resolved]
  - Hypothyroidism [Recovering/Resolving]
  - Drug interaction [Recovering/Resolving]
  - Parkinsonism [Recovered/Resolved]

NARRATIVE: CASE EVENT DATE: 20140410
